FAERS Safety Report 7577155-3 (Version None)
Quarter: 2011Q2

REPORT INFORMATION
  Report Type: 
  Country: None (occurrence: None)
  Receive Date: 20110628
  Receipt Date: 20110301
  Transmission Date: 20111010
  Serious: Yes (Hospitalization, Other)
  Sender: FDA-Public Use
  Company Number: US-BAYER-201037632NA

PATIENT
  Age: 23 Year
  Sex: Female
  Weight: 59.41 kg

DRUGS (4)
  1. YAZ [Suspect]
     Dosage: UNK, QD
     Dates: start: 20071213, end: 20090701
  2. YAZ [Suspect]
     Indication: CONTRACEPTION
     Route: 048
     Dates: start: 20070201, end: 20090801
  3. LORTAB [Concomitant]
     Dosage: UNK
     Dates: start: 20090714
  4. SENNA [Concomitant]
     Dosage: UNK
     Dates: start: 20090714

REACTIONS (6)
  - CHOLECYSTITIS CHRONIC [None]
  - BILIARY DYSKINESIA [None]
  - CHEST PAIN [None]
  - ABDOMINAL PAIN UPPER [None]
  - BOWEL MOVEMENT IRREGULARITY [None]
  - GALLBLADDER NON-FUNCTIONING [None]
